FAERS Safety Report 16970733 (Version 1)
Quarter: 2019Q4

REPORT INFORMATION
  Report Type: Spontaneous
  Country: US (occurrence: US)
  Receive Date: 20191029
  Receipt Date: 20191029
  Transmission Date: 20200122
  Serious: No
  Sender: FDA-Public Use
  Company Number: US-ANIPHARMA-2019-US-003896

PATIENT
  Age: 68 Year
  Sex: Male
  Weight: 136.08 kg

DRUGS (1)
  1. DIPHENOXYLATE HYDROCHLORIDE + ATROPINE SULFATE TABL ETS USP [Suspect]
     Active Substance: ATROPINE SULFATE\DIPHENOXYLATE HYDROCHLORIDE
     Indication: DIARRHOEA
     Dosage: ONE TABLET BY MOUTH FOUR TIMES DAILY AS NEEDED
     Route: 048

REACTIONS (3)
  - Headache [Recovered/Resolved]
  - Nausea [Recovered/Resolved]
  - Vomiting [Recovered/Resolved]

NARRATIVE: CASE EVENT DATE: 201712
